FAERS Safety Report 5827941-2 (Version None)
Quarter: 2008Q3

REPORT INFORMATION
  Report Type: 
  Country: None (occurrence: None)
  Receive Date: 20080730
  Receipt Date: 20080718
  Transmission Date: 20090109
  Serious: Yes (Other)
  Sender: FDA-Public Use
  Company Number: GB-PFIZER INC-2008060984

PATIENT
  Age: 87 Year
  Sex: Female

DRUGS (5)
  1. PREGABALIN [Suspect]
     Route: 048
     Dates: start: 20080325, end: 20080423
  2. BENDROFLUMETHIAZIDE [Concomitant]
     Dosage: DAILY DOSE:2.5MG
     Route: 048
  3. CALCIUM CARBONATE [Concomitant]
  4. TRAMADOL HCL [Concomitant]
     Dosage: DAILY DOSE:200MG
  5. VALSARTAN [Concomitant]
     Dosage: DAILY DOSE:80MG
     Route: 048

REACTIONS (5)
  - ANXIETY [None]
  - DEPRESSION [None]
  - MUSCLE TWITCHING [None]
  - SOCIAL AVOIDANT BEHAVIOUR [None]
  - TREMOR [None]
